FAERS Safety Report 8005132-7 (Version None)
Quarter: 2011Q4

REPORT INFORMATION
  Report Type: 
  Country: None (occurrence: None)
  Receive Date: 20111223
  Receipt Date: 20111213
  Transmission Date: 20120403
  Serious: Yes (Hospitalization, Other)
  Sender: FDA-Public Use
  Company Number: PHHY2011HR108663

PATIENT
  Age: 54 Year
  Sex: Male

DRUGS (9)
  1. CLOZAPINE [Suspect]
     Indication: BIPOLAR DISORDER
     Dosage: 150 MG, DAILY
  2. QUETIAPINE [Concomitant]
     Dosage: 700 MG, UNK
  3. QUETIAPINE [Concomitant]
     Dosage: 600 MG, UNK
  4. CLOZAPINE [Suspect]
     Dosage: 100 MG, UNK
  5. CLOZAPINE [Suspect]
     Dosage: 300 MG, UNK
  6. CLOZAPINE [Suspect]
     Dosage: 75 MG/ DAY
  7. CLOZAPINE [Suspect]
     Dosage: 75 MG, UNK
  8. DIAZEPAM [Concomitant]
     Dosage: 5-10 MG
  9. VALPROATE SODIUM [Concomitant]
     Dosage: 900 MG, UNK

REACTIONS (4)
  - INSOMNIA [None]
  - SUICIDAL IDEATION [None]
  - ANXIETY [None]
  - MENTAL IMPAIRMENT [None]
